FAERS Safety Report 14962545 (Version 2)
Quarter: 2018Q2

REPORT INFORMATION
  Report Type: Spontaneous
  Country: US (occurrence: US)
  Receive Date: 20180601
  Receipt Date: 20180605
  Transmission Date: 20180711
  Serious: Yes (Hospitalization, Other)
  Sender: FDA-Public Use
  Company Number: US-PFIZER INC-2018220550

PATIENT
  Age: 51 Year
  Sex: Female
  Weight: 133.8 kg

DRUGS (8)
  1. ZIPRASIDONE HCL [Suspect]
     Active Substance: ZIPRASIDONE HYDROCHLORIDE
     Dosage: 120 MG, UNK
  2. ZIPRASIDONE HCL [Suspect]
     Active Substance: ZIPRASIDONE HYDROCHLORIDE
     Dosage: 60 MG, UNK
     Dates: start: 201803, end: 201804
  3. ZIPRASIDONE HCL [Suspect]
     Active Substance: ZIPRASIDONE HYDROCHLORIDE
     Dosage: 40 MG, UNK
     Dates: start: 20180414, end: 2018
  4. ZIPRASIDONE HCL [Suspect]
     Active Substance: ZIPRASIDONE HYDROCHLORIDE
     Dosage: 20 MG, UNK
     Dates: start: 2018
  5. ZIPRASIDONE HCL [Suspect]
     Active Substance: ZIPRASIDONE HYDROCHLORIDE
     Dosage: 60 MG, UNK
  6. CYMBALTA [Concomitant]
     Active Substance: DULOXETINE HYDROCHLORIDE
     Indication: TOURETTE^S DISORDER
     Dosage: 60 MG, 1X/DAY [ONCE IN THE MORNING]
  7. ZIPRASIDONE HCL [Suspect]
     Active Substance: ZIPRASIDONE HYDROCHLORIDE
     Dosage: 60 MG, UNK
     Dates: start: 201101
  8. NORCO [Concomitant]
     Active Substance: ACETAMINOPHEN\HYDROCODONE BITARTRATE
     Dosage: UNK

REACTIONS (9)
  - Mental impairment [Unknown]
  - Depression [Unknown]
  - Dementia Alzheimer^s type [Unknown]
  - Tinea infection [Unknown]
  - Feeling abnormal [Unknown]
  - Rash [Unknown]
  - Drug use disorder [Unknown]
  - Suicide attempt [Unknown]
  - Hyperhidrosis [Recovered/Resolved]

NARRATIVE: CASE EVENT DATE: 2017
